FAERS Safety Report 22621233 (Version 1)
Quarter: 2023Q2

REPORT INFORMATION
  Report Type: Spontaneous
  Country: US (occurrence: US)
  Receive Date: 20230620
  Receipt Date: 20230620
  Transmission Date: 20230722
  Serious: Yes (Hospitalization)
  Sender: FDA-Public Use
  Company Number: US-PFIZER INC-202300222871

PATIENT
  Age: 14 Year
  Sex: Female

DRUGS (2)
  1. OXBRYTA [Suspect]
     Active Substance: VOXELOTOR
     Dosage: 1500 MG, 1X/DAY
     Route: 048
  2. FOLIC ACID [Suspect]
     Active Substance: FOLIC ACID
     Dosage: UNK

REACTIONS (4)
  - Pneumonia [Unknown]
  - Pain [Recovered/Resolved]
  - Abdominal discomfort [Unknown]
  - Intentional product misuse [Unknown]
